FAERS Safety Report 9284420 (Version 2)
Quarter: 2013Q3

REPORT INFORMATION
  Report Type: Spontaneous
  Country: US (occurrence: US)
  Receive Date: 20130510
  Receipt Date: 20130828
  Transmission Date: 20140515
  Serious: Yes (Other)
  Sender: FDA-Public Use
  Company Number: CHPA2013US002744

PATIENT
  Age: 67 Year
  Sex: Female

DRUGS (5)
  1. EXCEDRIN ES BACK + BODY [Suspect]
     Indication: ARTHRITIS
     Dosage: 1 TO 2 DF, UNK
     Route: 048
  2. EXCEDRIN ES BACK + BODY [Suspect]
     Indication: PAIN
  3. EXCEDRIN ES BACK + BODY [Suspect]
     Indication: INSOMNIA
  4. TRAMADOL [Concomitant]
     Indication: ARTHRITIS
     Dosage: 400 MG, QD
  5. PRILOSEC [Concomitant]

REACTIONS (7)
  - Bronchitis [Recovered/Resolved]
  - Sinusitis [Recovered/Resolved]
  - Arthralgia [Unknown]
  - Disease recurrence [Unknown]
  - Therapeutic response unexpected [Unknown]
  - Off label use [Unknown]
  - Underdose [Unknown]
